FAERS Safety Report 21721167 (Version 1)
Quarter: 2022Q4

REPORT INFORMATION
  Report Type: Spontaneous
  Country: US (occurrence: US)
  Receive Date: 20221213
  Receipt Date: 20221213
  Transmission Date: 20230113
  Serious: No
  Sender: FDA-Public Use
  Company Number: US-SA-SAC20221209000785

PATIENT
  Sex: Female

DRUGS (2)
  1. KEVZARA [Suspect]
     Active Substance: SARILUMAB
     Dosage: 150 MG, QOW
     Route: 058
  2. PRIVIGEN [Suspect]
     Active Substance: HUMAN IMMUNOGLOBULIN G

REACTIONS (4)
  - Pain [Unknown]
  - Neck pain [Unknown]
  - Myalgia [Unknown]
  - Infusion site pain [Unknown]

NARRATIVE: CASE EVENT DATE: 20221206
